FAERS Safety Report 5107363-2 (Version None)
Quarter: 2006Q3

REPORT INFORMATION
  Report Type: 
  Country: None (occurrence: None)
  Receive Date: 20060914
  Receipt Date: 20060828
  Transmission Date: 20061208
  Serious: Yes (Other)
  Sender: FDA-Public Use
  Company Number: 2006108383

PATIENT
  Age: 64 Year
  Sex: Female
  Weight: 98.8842 kg

DRUGS (1)
  1. CELEBREX [Suspect]
     Indication: BACK PAIN
     Dosage: 300 MG (100 MG, 2 IN 1 D)
     Dates: start: 20040401

REACTIONS (4)
  - BLINDNESS [None]
  - OCULAR VASCULAR DISORDER [None]
  - RETINAL HAEMORRHAGE [None]
  - RETINAL VASCULAR THROMBOSIS [None]
